FAERS Safety Report 9142891 (Version 1)
Quarter: 2013Q1

REPORT INFORMATION
  Report Type: Spontaneous
  Country: US (occurrence: US)
  Receive Date: 20130306
  Receipt Date: 20130306
  Transmission Date: 20140127
  Serious: No
  Sender: FDA-Public Use
  Company Number: US-PFIZER INC-2013074180

PATIENT
  Sex: Male

DRUGS (2)
  1. LATANOPROST [Suspect]
     Indication: GLAUCOMA
     Dosage: ONE DROP IN RIGHT EYE, 1X/DAY
     Route: 047
     Dates: start: 2008
  2. COSOPT [Concomitant]
     Indication: GLAUCOMA
     Dosage: ONE DROP, 2X/DAY
     Route: 047

REACTIONS (1)
  - Eye pain [Recovered/Resolved]
